FAERS Safety Report 11607335 (Version 1)
Quarter: 2015Q4

REPORT INFORMATION
  Report Type: Spontaneous
  Country: FR (occurrence: FR)
  Receive Date: 20151007
  Receipt Date: 20151007
  Transmission Date: 20160304
  Serious: Yes (Hospitalization)
  Sender: FDA-Public Use
  Company Number: FR-SA-2015SA149541

PATIENT
  Age: 84 Year
  Sex: Male

DRUGS (7)
  1. LASILIX SPECIAL [Suspect]
     Active Substance: FUROSEMIDE
     Indication: CARDIAC FAILURE
     Route: 048
     Dates: start: 201507, end: 20150814
  2. PREVISCAN [Concomitant]
     Active Substance: FLUINDIONE
     Dosage: STRENGTH: 20 MG, DOSE AND FREQUENCY:1.6667  MG  (5  MG, 1  IN 3  DAYS)?0.25 DF
     Route: 048
     Dates: end: 20150813
  3. AMIODARONE [Concomitant]
     Active Substance: AMIODARONE
     Dosage: FREQUENCY:1 IN THE MORNING,
     Route: 048
  4. SIMVASTATIN. [Concomitant]
     Active Substance: SIMVASTATIN
     Dosage: 1 IN THE EVENING
     Route: 048
  5. EUPANTOL [Concomitant]
     Active Substance: PANTOPRAZOLE SODIUM
     Dosage: STRENGTH: 20 MG, 1 IN THE EVENING
     Route: 048
     Dates: end: 20150804
  6. AVODART [Concomitant]
     Active Substance: DUTASTERIDE
     Dosage: STRENGTH: 0.5 MG,1 IN THE EVENING
     Route: 048
  7. DIFFU  K [Concomitant]
     Active Substance: POTASSIUM CHLORIDE
     Dosage: 1 AT NOON
     Route: 048

REACTIONS (2)
  - Renal failure [Recovered/Resolved]
  - Hypokalaemia [Recovered/Resolved]

NARRATIVE: CASE EVENT DATE: 20150804
